FAERS Safety Report 14497634 (Version 7)
Quarter: 2020Q4

REPORT INFORMATION
  Report Type: Spontaneous
  Country: US (occurrence: US)
  Receive Date: 20180207
  Receipt Date: 20201002
  Transmission Date: 20210113
  Serious: Yes (Congenital Anomaly, Other)
  Sender: FDA-Public Use
  Company Number: PHEH2018US003849

PATIENT
  Sex: Female

DRUGS (3)
  1. ONDANSETRON HYDROCHLORIDE. [Suspect]
     Active Substance: ONDANSETRON HYDROCHLORIDE
     Indication: FOETAL EXPOSURE DURING PREGNANCY
     Dosage: MOTHER DOSE: 4 MG, UNK
     Route: 064
  2. ONDANSETRON HYDROCHLORIDE. [Suspect]
     Active Substance: ONDANSETRON HYDROCHLORIDE
     Indication: FOETAL EXPOSURE DURING PREGNANCY
     Dosage: MOTHER DOSE: 8 MG, Q8H
     Route: 064
  3. ZOFRAN [Suspect]
     Active Substance: ONDANSETRON HYDROCHLORIDE
     Indication: FOETAL EXPOSURE DURING PREGNANCY
     Route: 064

REACTIONS (20)
  - Jaundice neonatal [Unknown]
  - Gastroenteritis [Unknown]
  - Communication disorder [Unknown]
  - Dermatitis atopic [Unknown]
  - Keloid scar [Unknown]
  - Teething [Unknown]
  - Injury [Unknown]
  - Snoring [Unknown]
  - Hypermetropia [Unknown]
  - Genital labial adhesions [Unknown]
  - Language disorder [Unknown]
  - Dyslexia [Unknown]
  - Rash [Unknown]
  - Reading disorder [Unknown]
  - Cleft lip [Unknown]
  - Procedural nausea [Unknown]
  - Astigmatism [Unknown]
  - Foetal exposure during pregnancy [Unknown]
  - Procedural vomiting [Unknown]
  - Dysgraphia [Unknown]
